FAERS Safety Report 8484632-X (Version None)
Quarter: 2012Q3

REPORT INFORMATION
  Report Type: 
  Country: None (occurrence: None)
  Receive Date: 20120703
  Receipt Date: 20120403
  Transmission Date: 20120928
  Serious: Yes (Other)
  Sender: FDA-Public Use
  Company Number: US-TEVA-331711USA

PATIENT
  Sex: Female
  Weight: 74.91 kg

DRUGS (9)
  1. NUVIGIL [Suspect]
     Indication: NARCOLEPSY
     Dosage: 250 MILLIGRAM;
     Route: 048
  2. OMEPRAZOLE [Concomitant]
     Dosage: 40 MILLIGRAM;
  3. ESTROGENS CONJUGATED [Concomitant]
     Dosage: 1.25 MILLIGRAM;
  4. CYCLOBENZAPRINE HCL [Concomitant]
  5. LAMOTRIGINE [Concomitant]
     Dosage: 300 MILLIGRAM;
  6. VICODIN [Concomitant]
  7. SODIUM OXYBATE [Concomitant]
  8. DULOXETINE HYDROCHLORIDE [Concomitant]
  9. PREGABALIN [Concomitant]
     Dosage: 150 MILLIGRAM;

REACTIONS (22)
  - CHEST PAIN [None]
  - TACHYPHRENIA [None]
  - FATIGUE [None]
  - DISTURBANCE IN ATTENTION [None]
  - VISUAL IMPAIRMENT [None]
  - WEIGHT INCREASED [None]
  - PAIN [None]
  - EYE PAIN [None]
  - FEELING JITTERY [None]
  - CHEST DISCOMFORT [None]
  - EYE SWELLING [None]
  - DYSPNOEA [None]
  - FEELING ABNORMAL [None]
  - OCULAR HYPERAEMIA [None]
  - DIZZINESS [None]
  - ANGIOEDEMA [None]
  - MANIA [None]
  - SWELLING [None]
  - NAUSEA [None]
  - VISION BLURRED [None]
  - INSOMNIA [None]
  - RASH PRURITIC [None]
